FAERS Safety Report 10143879 (Version 2)
Quarter: 2014Q2

REPORT INFORMATION
  Report Type: Report from Study
  Country: US (occurrence: US)
  Receive Date: 20140430
  Receipt Date: 20140619
  Transmission Date: 20141212
  Serious: Yes (Other)
  Sender: FDA-Public Use
  Company Number: US-BAYER-2014-061159

PATIENT
  Age: 66 Year
  Sex: Male
  Weight: 76.64 kg

DRUGS (1)
  1. NEXAVAR [Suspect]
     Indication: HEPATIC CANCER
     Dosage: DOSE REGIMEN:4 X 200 MG
     Route: 048
     Dates: start: 20140201, end: 20140422

REACTIONS (5)
  - Palpitations [Recovered/Resolved]
  - Hepatic cancer [None]
  - Metastases to bone [None]
  - Metastases to pleura [None]
  - Ascites [None]
